FAERS Safety Report 13669590 (Version 1)
Quarter: 2017Q2

REPORT INFORMATION
  Report Type: Report from Study
  Country: CA (occurrence: CA)
  Receive Date: 20170620
  Receipt Date: 20170620
  Transmission Date: 20170830
  Serious: Yes (Disabling, Other)
  Sender: FDA-Public Use
  Company Number: CA-AMGEN-CANSL2017091566

PATIENT
  Age: 48 Year
  Sex: Female
  Weight: 154.3 kg

DRUGS (2)
  1. KYPROLIS [Suspect]
     Active Substance: CARFILZOMIB
     Dosage: 60 MG, DAY 1, 2, 8, 9, 15, 16 (CYCLE 2)
     Route: 042
     Dates: start: 20170605
  2. KYPROLIS [Suspect]
     Active Substance: CARFILZOMIB
     Indication: PLASMA CELL MYELOMA
     Dosage: UNK
     Route: 042

REACTIONS (4)
  - Haemoglobin decreased [Not Recovered/Not Resolved]
  - Dry mouth [Unknown]
  - Oedema [Not Recovered/Not Resolved]
  - Neoplasm [Not Recovered/Not Resolved]

NARRATIVE: CASE EVENT DATE: 20170612
